FAERS Safety Report 9587815 (Version 7)
Quarter: 2014Q1

REPORT INFORMATION
  Report Type: Spontaneous
  Country: US (occurrence: US)
  Receive Date: 20131003
  Receipt Date: 20140227
  Transmission Date: 20141002
  Serious: No
  Sender: FDA-Public Use
  Company Number: US-PFIZER INC-2013279375

PATIENT
  Age: 55 Year
  Sex: Male
  Weight: 72.56 kg

DRUGS (5)
  1. SUTENT [Suspect]
     Indication: RENAL CELL CARCINOMA
     Dosage: 50 MG, CYCLIC (50 MG 1 QD X 28 DAYS 14 DAYS OFF)
     Route: 048
     Dates: start: 20130907
  2. METFORMIN [Concomitant]
     Dosage: UNK
  3. ATENOLOL [Concomitant]
     Dosage: UNK
  4. LISINOPRIL [Concomitant]
     Dosage: UNK
  5. COUMADINE [Concomitant]
     Indication: THROMBOSIS
     Dosage: UNK

REACTIONS (12)
  - Epistaxis [Not Recovered/Not Resolved]
  - Palmar-plantar erythrodysaesthesia syndrome [Not Recovered/Not Resolved]
  - Blister [Not Recovered/Not Resolved]
  - Pain in extremity [Recovered/Resolved]
  - Pain [Unknown]
  - Dysgeusia [Recovering/Resolving]
  - Stomatitis [Recovered/Resolved]
  - Abdominal discomfort [Recovered/Resolved]
  - Nausea [Unknown]
  - Blood glucose increased [Unknown]
  - Weight decreased [Unknown]
  - Malaise [Unknown]
